FAERS Safety Report 8008561-0 (Version None)
Quarter: 2011Q4

REPORT INFORMATION
  Report Type: 
  Country: None (occurrence: None)
  Receive Date: 20111227
  Receipt Date: 20111215
  Transmission Date: 20120403
  Serious: Yes (Other)
  Sender: FDA-Public Use
  Company Number: FR-ROCHE-1023495

PATIENT
  Sex: Female

DRUGS (2)
  1. XELODA [Suspect]
     Indication: BREAST CANCER
     Dates: start: 20100423
  2. DOCETAXEL [Suspect]
     Indication: BREAST CANCER
     Dates: start: 20100512

REACTIONS (1)
  - DRUG ERUPTION [None]
